FAERS Safety Report 22393698 (Version 1)
Quarter: 2023Q2

REPORT INFORMATION
  Report Type: Spontaneous
  Country: US (occurrence: US)
  Receive Date: 20230601
  Receipt Date: 20230601
  Transmission Date: 20230721
  Serious: No
  Sender: FDA-Public Use
  Company Number: US-SANOFI-01633645

PATIENT
  Sex: Male

DRUGS (1)
  1. MULTAQ [Suspect]
     Active Substance: DRONEDARONE
     Indication: Cardiac disorder
     Dosage: 200 MG, BID

REACTIONS (6)
  - Productive cough [Not Recovered/Not Resolved]
  - Musculoskeletal chest pain [Unknown]
  - Abdominal distension [Unknown]
  - Fatigue [Unknown]
  - Abdominal pain upper [Unknown]
  - Wrong technique in product usage process [Unknown]
